FAERS Safety Report 10933045 (Version 2)
Quarter: 2015Q2

REPORT INFORMATION
  Report Type: Spontaneous
  Country: PK (occurrence: PK)
  Receive Date: 20150320
  Receipt Date: 20150407
  Transmission Date: 20150821
  Serious: Yes (Death, Hospitalization, Other)
  Sender: FDA-Public Use
  Company Number: PK-GILEAD-2015-0143289

PATIENT
  Age: 28 Year
  Sex: Male

DRUGS (2)
  1. SOVALDI [Suspect]
     Active Substance: SOFOSBUVIR
     Indication: HEPATITIS C
     Dosage: 400 MG, QD
     Route: 048
     Dates: start: 20140917, end: 20140921
  2. XOLOX                              /00816701/ [Suspect]
     Active Substance: RIBAVIRIN
     Indication: HEPATITIS C
     Dosage: 1200 MG, QD
     Route: 048
     Dates: start: 20140917, end: 20140921

REACTIONS (5)
  - Death [Fatal]
  - Flatulence [Unknown]
  - Hepatic encephalopathy [Unknown]
  - Coma [Unknown]
  - Vomiting [Unknown]

NARRATIVE: CASE EVENT DATE: 201409
